FAERS Safety Report 8174147-0 (Version None)
Quarter: 2012Q1

REPORT INFORMATION
  Report Type: 
  Country: None (occurrence: None)
  Receive Date: 20120224
  Receipt Date: 20120209
  Transmission Date: 20120608
  Serious: Yes (Life-Threatening, Other)
  Sender: FDA-Public Use
  Company Number: JP-2012-10245

PATIENT
  Age: 69 Year
  Sex: Female
  Weight: 43 kg

DRUGS (6)
  1. PLETAL [Suspect]
     Indication: BRADYCARDIA
     Dosage: 100 MG MILLIGRAM(S), BID, ORAL
     Route: 048
     Dates: start: 20111220, end: 20111228
  2. ALDACTONE [Concomitant]
  3. TAKEPRON (LANSOPRAZOLE) ORODISPERSIBLE TABLET [Concomitant]
  4. WARFARIN SODIUM [Concomitant]
  5. LOSARTAN POTASSIUM [Concomitant]
  6. ALPRAZOLAM [Concomitant]

REACTIONS (9)
  - VENTRICULAR TACHYCARDIA [None]
  - ATRIAL FIBRILLATION [None]
  - ELECTROCARDIOGRAM R ON T PHENOMENON [None]
  - LOSS OF CONSCIOUSNESS [None]
  - SYNCOPE [None]
  - VENTRICULAR FIBRILLATION [None]
  - ELECTROCARDIOGRAM QT PROLONGED [None]
  - HEART RATE DECREASED [None]
  - TORSADE DE POINTES [None]
